FAERS Safety Report 5071348-5 (Version None)
Quarter: 2006Q3

REPORT INFORMATION
  Report Type: 
  Country: None (occurrence: None)
  Receive Date: 20060803
  Receipt Date: 20060803
  Transmission Date: 20061208
  Serious: No
  Sender: FDA-Public Use
  Company Number: None

PATIENT
  Age: 52 Year
  Sex: Male

DRUGS (7)
  1. ISONIAZID [Suspect]
     Dates: start: 20050610, end: 20050621
  2. RIFAMPIN [Suspect]
     Dosage: 600 MG PO DAILY
     Route: 048
     Dates: start: 20050611, end: 20050619
  3. COMBIVIR (LAMIVUDINE AND ZIDOVUDINE) [Concomitant]
  4. SUSTIVA [Concomitant]
  5. ATOVAQUONE [Concomitant]
  6. PROTONIX [Concomitant]
  7. FLUCONAZOLE [Concomitant]

REACTIONS (14)
  - ABDOMINAL TENDERNESS [None]
  - ALANINE AMINOTRANSFERASE INCREASED [None]
  - ASPARTATE AMINOTRANSFERASE INCREASED [None]
  - BILIRUBIN CONJUGATED INCREASED [None]
  - BLOOD ALKALINE PHOSPHATASE INCREASED [None]
  - BLOOD BILIRUBIN INCREASED [None]
  - BLOOD LACTATE DEHYDROGENASE INCREASED [None]
  - CHOLESTASIS [None]
  - CONDITION AGGRAVATED [None]
  - FATIGUE [None]
  - HEPATIC TRAUMA [None]
  - JAUNDICE [None]
  - LIVER DISORDER [None]
  - SERUM FERRITIN INCREASED [None]
